FAERS Safety Report 4918954-3 (Version None)
Quarter: 2006Q1

REPORT INFORMATION
  Report Type: 
  Country: None (occurrence: None)
  Receive Date: 20060222
  Receipt Date: 20051222
  Transmission Date: 20060701
  Serious: Yes (Other)
  Sender: FDA-Public Use
  Company Number: JP-JPN-A20053184

PATIENT
  Age: 40 Year
  Sex: Male
  Weight: 71 kg

DRUGS (3)
  1. ZEFIX [Suspect]
     Indication: HEPATITIS B
     Dosage: 100MG PER DAY
     Route: 048
     Dates: start: 20051124, end: 20051222
  2. URSO [Suspect]
     Indication: CHRONIC HEPATITIS
     Dosage: 200MG THREE TIMES PER DAY
     Route: 048
     Dates: start: 20050929, end: 20051222
  3. HEPSERA [Concomitant]
     Indication: HEPATITIS B
     Dosage: 10MG PER DAY
     Route: 048
     Dates: start: 20051222

REACTIONS (3)
  - ALANINE AMINOTRANSFERASE INCREASED [None]
  - ASPARTATE AMINOTRANSFERASE INCREASED [None]
  - HEPATIC FUNCTION ABNORMAL [None]
